FAERS Safety Report 18207632 (Version 1)
Quarter: 2020Q3

REPORT INFORMATION
  Report Type: Spontaneous
  Country: US (occurrence: US)
  Receive Date: 20200828
  Receipt Date: 20200828
  Transmission Date: 20201103
  Serious: No
  Sender: FDA-Public Use
  Company Number: None

PATIENT
  Age: 72 Year
  Sex: Male
  Weight: 64.49 kg

DRUGS (13)
  1. CETIRIZINE [Concomitant]
     Active Substance: CETIRIZINE HYDROCHLORIDE
  2. GABAPENTIN 300MG [Concomitant]
     Active Substance: GABAPENTIN
  3. PROCHLORPERAZINE 10MG [Concomitant]
  4. LIDOCAINE 3% [Concomitant]
  5. TAMSULOSIN 0.4MG [Concomitant]
     Active Substance: TAMSULOSIN
  6. ELIQUIS [Concomitant]
     Active Substance: APIXABAN
  7. ONDANSETRON 8MG [Concomitant]
     Active Substance: ONDANSETRON
  8. CAPECITABINE. [Suspect]
     Active Substance: CAPECITABINE
     Indication: RECTAL CANCER
     Route: 048
     Dates: start: 20200612
  9. LISINOPRIL. [Concomitant]
     Active Substance: LISINOPRIL
  10. ACETAMINOPHEN 500MG [Concomitant]
     Active Substance: ACETAMINOPHEN
  11. DEXAMETHASONE 4MG [Concomitant]
     Active Substance: DEXAMETHASONE
  12. CAPECITABINE. [Suspect]
     Active Substance: CAPECITABINE
     Indication: RECTAL CANCER
     Route: 048
     Dates: start: 20200612
  13. OXYCODONE 15MG [Concomitant]
     Active Substance: OXYCODONE

REACTIONS (4)
  - Rash [None]
  - Nausea [None]
  - Burning sensation [None]
  - Skin exfoliation [None]

NARRATIVE: CASE EVENT DATE: 20200828
